FAERS Safety Report 6261631-X (Version None)
Quarter: 2009Q3

REPORT INFORMATION
  Report Type: 
  Country: None (occurrence: None)
  Receive Date: 20090709
  Receipt Date: 20090603
  Transmission Date: 20100115
  Serious: No
  Sender: FDA-Public Use
  Company Number: US-BAYER-200922699NA

PATIENT
  Age: 36 Year
  Sex: Female
  Weight: 113 kg

DRUGS (2)
  1. MIRENA [Suspect]
     Indication: MENORRHAGIA
     Dosage: 20 UG/DAY CONTINUOUS
     Route: 015
     Dates: start: 20090403, end: 20090603
  2. EXCEDRIN (MIGRAINE) [Concomitant]

REACTIONS (1)
  - UTERINE RUPTURE [None]
